FAERS Safety Report 8524598-7 (Version None)
Quarter: 2012Q3

REPORT INFORMATION
  Report Type: 
  Country: None (occurrence: None)
  Receive Date: 20120720
  Receipt Date: 20120718
  Transmission Date: 20120928
  Serious: Yes (Death)
  Sender: FDA-Public Use
  Company Number: JP-B.I. PHARMACEUTICALS,INC./RIDGEFIELD-2012-BP-13174NB

PATIENT
  Sex: Male
  Weight: 76 kg

DRUGS (3)
  1. ASPIRIN [Suspect]
     Indication: ANTIPLATELET THERAPY
     Dosage: 100 MG
     Route: 048
     Dates: start: 20110901
  2. PRADAXA [Suspect]
     Indication: ATRIAL FIBRILLATION
     Dosage: 220 MG
     Route: 048
     Dates: start: 20110930
  3. BEPRICOR [Concomitant]
     Indication: ATRIAL FIBRILLATION
     Route: 048
     Dates: start: 20120315

REACTIONS (4)
  - MULTI-ORGAN FAILURE [None]
  - HAEMORRHAGE [None]
  - AORTIC DISSECTION [None]
  - SHOCK HAEMORRHAGIC [None]
